FAERS Safety Report 25136856 (Version 1)
Quarter: 2025Q1

REPORT INFORMATION
  Report Type: Spontaneous
  Country: US (occurrence: US)
  Receive Date: 20250328
  Receipt Date: 20250328
  Transmission Date: 20250409
  Serious: No
  Sender: ABBVIE
  Company Number: US-ABBVIE-6193966

PATIENT
  Age: 76 Year
  Sex: Female
  Weight: 68.04 kg

DRUGS (2)
  1. CYCLOSPORINE [Suspect]
     Active Substance: CYCLOSPORINE
     Indication: Scar
     Dosage: STRENGTH 0.05 %, DOSAGE 0.050 % ?TWO TIMES A DAY, ONCE BEFORE GOING TO BED AND ONCE AFTER WAKING ...
     Dates: start: 202503
  2. CYCLOSPORINE [Suspect]
     Active Substance: CYCLOSPORINE
     Indication: Dry eye

REACTIONS (3)
  - Scar [Unknown]
  - Drug ineffective [Unknown]
  - Dry eye [Not Recovered/Not Resolved]
